FAERS Safety Report 7464272-1 (Version None)
Quarter: 2011Q2

REPORT INFORMATION
  Report Type: 
  Country: None (occurrence: None)
  Receive Date: 20110509
  Receipt Date: 20110428
  Transmission Date: 20111010
  Serious: Yes (Hospitalization, Other)
  Sender: FDA-Public Use
  Company Number: US-BIOGENIDEC-2009BI038623

PATIENT
  Age: 56 Year
  Sex: Female
  Weight: 79 kg

DRUGS (5)
  1. TYSABRI [Suspect]
     Route: 042
     Dates: start: 20110412, end: 20110412
  2. ZOCOR [Concomitant]
  3. VITAMIN B-12 [Concomitant]
  4. PROZAC [Concomitant]
     Route: 048
  5. TYSABRI [Suspect]
     Indication: MULTIPLE SCLEROSIS
     Route: 042
     Dates: start: 20081217, end: 20091027

REACTIONS (11)
  - HYPERPLASIA [None]
  - PAIN [None]
  - METASTASES TO LUNG [None]
  - BREAST LUMP REMOVAL [None]
  - BRONCHIOLITIS [None]
  - TEMPERATURE INTOLERANCE [None]
  - CHEST PAIN [None]
  - ADRENAL ADENOMA [None]
  - LUNG ADENOCARCINOMA STAGE I [None]
  - EMPHYSEMA [None]
  - ABDOMINAL PAIN [None]
